FAERS Safety Report 8924345 (Version 1)
Quarter: 2012Q4

REPORT INFORMATION
  Report Type: 
  Country: IE (occurrence: IE)
  Receive Date: 20121126
  Receipt Date: 20121126
  Transmission Date: 20130627
  Serious: Yes (Other)
  Sender: FDA-Public Use
  Company Number: IE-GLAXOSMITHKLINE-B0846754A

PATIENT

DRUGS (1)
  1. VOTRIENT [Suspect]
     Indication: SARCOMA
     Route: 065

REACTIONS (1)
  - Renal failure [Unknown]
